FAERS Safety Report 25620350 (Version 1)
Quarter: 2025Q3

REPORT INFORMATION
  Report Type: Spontaneous
  Country: US (occurrence: US)
  Receive Date: 20250730
  Receipt Date: 20250730
  Transmission Date: 20251021
  Serious: No
  Sender: PL DEVELOPMENTS
  Company Number: US-P+L Devolo-2181484

PATIENT
  Sex: Female

DRUGS (4)
  1. NICOTINE POLACRILEX [Suspect]
     Active Substance: NICOTINE
     Indication: Smoking cessation therapy
     Dates: start: 20250703, end: 20250704
  2. RIZATRIPTAN [Concomitant]
     Active Substance: RIZATRIPTAN
  3. ALBUTEROL [Concomitant]
     Active Substance: ALBUTEROL
  4. LEVOTHYROXINE SODIUM [Concomitant]
     Active Substance: LEVOTHYROXINE SODIUM

REACTIONS (2)
  - Pharyngeal swelling [Recovered/Resolved]
  - Hypersensitivity [Recovered/Resolved]

NARRATIVE: CASE EVENT DATE: 20250703
